FAERS Safety Report 9197259 (Version 1)
Quarter: 2013Q1

REPORT INFORMATION
  Report Type: Spontaneous
  Country: GB (occurrence: GB)
  Receive Date: 20130328
  Receipt Date: 20130328
  Transmission Date: 20140127
  Serious: Yes (Other)
  Sender: FDA-Public Use
  Company Number: GB-ASTRAZENECA-2013SE18041

PATIENT
  Age: 15 Year
  Sex: Female
  Weight: 57 kg

DRUGS (3)
  1. LIDOCAINE [Suspect]
     Indication: LOCAL ANAESTHESIA
     Route: 059
     Dates: start: 20121109, end: 20121109
  2. CHLORHEXIDINE [Suspect]
     Route: 003
     Dates: start: 20121109, end: 20121109
  3. NEXPLANON [Suspect]
     Indication: CONTRACEPTION
     Route: 059
     Dates: start: 20121109

REACTIONS (3)
  - Lip swelling [Recovering/Resolving]
  - Swollen tongue [Recovering/Resolving]
  - Angioedema [Recovering/Resolving]
